FAERS Safety Report 8342522-7 (Version None)
Quarter: 2012Q2

REPORT INFORMATION
  Report Type: 
  Country: None (occurrence: None)
  Receive Date: 20120508
  Receipt Date: 20120427
  Transmission Date: 20120825
  Serious: No
  Sender: FDA-Public Use
  Company Number: US-BIOGENIDEC-2012BI015041

PATIENT
  Sex: Male

DRUGS (3)
  1. REBIF [Concomitant]
  2. COPAXONE [Concomitant]
  3. TYSABRI [Suspect]
     Indication: MULTIPLE SCLEROSIS
     Route: 042
     Dates: start: 20100114, end: 20111103

REACTIONS (3)
  - PAIN [None]
  - HYPERSENSITIVITY [None]
  - GENERAL SYMPTOM [None]
